FAERS Safety Report 21475047 (Version 3)
Quarter: 2023Q1

REPORT INFORMATION
  Report Type: Report from Study
  Country: US (occurrence: US)
  Receive Date: 20221019
  Receipt Date: 20230110
  Transmission Date: 20230418
  Serious: No
  Sender: FDA-Public Use
  Company Number: US-NOVARTISTESTPH-NVSC2022US234561

PATIENT
  Sex: Male

DRUGS (1)
  1. ILARIS [Suspect]
     Active Substance: CANAKINUMAB
     Indication: Juvenile idiopathic arthritis
     Dosage: 300 MG, FOR EVERY 4 WEEKS
     Route: 058
     Dates: start: 20210513

REACTIONS (3)
  - Arthralgia [Unknown]
  - Illness [Unknown]
  - Nasopharyngitis [Recovered/Resolved]
